FAERS Safety Report 10452146 (Version 1)
Quarter: 2014Q3

REPORT INFORMATION
  Report Type: Spontaneous
  Country: IN (occurrence: None)
  Receive Date: 20140911
  Receipt Date: 20140911
  Transmission Date: 20150326
  Serious: Yes (Life-Threatening, Hospitalization)
  Sender: FDA-Public Use
  Company Number: 2014/062

PATIENT
  Age: 63 Year
  Sex: Male

DRUGS (2)
  1. OLANZAPINE. [Suspect]
     Active Substance: OLANZAPINE
     Indication: DEPRESSION
     Dosage: 5MG/DAY, UNK + UNK
  2. ESCITALOPRAM [Suspect]
     Active Substance: ESCITALOPRAM OXALATE
     Dosage: 10MG/DAY UNK + UNK

REACTIONS (16)
  - Pallor [None]
  - Decreased appetite [None]
  - Muscle spasms [None]
  - Hallucination, auditory [None]
  - Lethargy [None]
  - Depression [None]
  - Gait disturbance [None]
  - Hyponatraemia [None]
  - Asthenia [None]
  - Urinary retention [None]
  - Nausea [None]
  - Disorientation [None]
  - Sleep disorder [None]
  - Tachycardia [None]
  - White blood cell count increased [None]
  - Dehydration [None]
